FAERS Safety Report 13708494 (Version 1)
Quarter: 2017Q2

REPORT INFORMATION
  Report Type: Spontaneous
  Country: US (occurrence: US)
  Receive Date: 20170630
  Receipt Date: 20170630
  Transmission Date: 20170830
  Serious: No
  Sender: FDA-Public Use
  Company Number: US-SUNOVION-2017SUN002651

PATIENT
  Age: 36 Year
  Sex: Male
  Weight: 133 kg

DRUGS (5)
  1. FELBAMATE. [Interacting]
     Active Substance: FELBAMATE
     Dosage: 800 MG, BID
  2. APTIOM [Suspect]
     Active Substance: ESLICARBAZEPINE ACETATE
     Dosage: 400 MG, QD
  3. FLORASTOR [Interacting]
     Active Substance: SACCHAROMYCES CEREVISIAE
     Dosage: 250 MG, QD
  4. DEPAKOTE [Interacting]
     Active Substance: DIVALPROEX SODIUM
     Dosage: 250 MG, BID
     Route: 065
  5. BANZEL [Interacting]
     Active Substance: RUFINAMIDE
     Dosage: 800 MG, BID
     Route: 065

REACTIONS (2)
  - Drug interaction [Unknown]
  - Weight decreased [Unknown]
